FAERS Safety Report 11642919 (Version 1)
Quarter: 2015Q4

REPORT INFORMATION
  Report Type: Report from Study
  Country: FR (occurrence: FR)
  Receive Date: 20151020
  Receipt Date: 20151020
  Transmission Date: 20160304
  Serious: Yes (Hospitalization)
  Sender: FDA-Public Use
  Company Number: PHHO2015FR018064

PATIENT
  Age: 3 Year
  Sex: Female
  Weight: 12.6 kg

DRUGS (7)
  1. METHOTREXATE [Concomitant]
     Active Substance: METHOTREXATE
     Indication: JUVENILE IDIOPATHIC ARTHRITIS
     Dosage: 7.5 MG, QW
     Route: 065
  2. IBUPROFEN. [Concomitant]
     Active Substance: IBUPROFEN
     Indication: JUVENILE IDIOPATHIC ARTHRITIS
     Dosage: 10 MG/KG, TID
  3. INEXIUM [Concomitant]
     Active Substance: ESOMEPRAZOLE
     Indication: GASTRITIS PROPHYLAXIS
     Dosage: 10 MG, QD
     Route: 065
  4. ACZ885 [Suspect]
     Active Substance: CANAKINUMAB
     Indication: JUVENILE IDIOPATHIC ARTHRITIS
     Dosage: 4 MG/KG/FOOUR WEEKS
     Route: 058
     Dates: start: 20150106
  5. LEVOFOLENE [Concomitant]
     Active Substance: LEVOLEUCOVORIN CALCIUM
     Indication: DRUG TOXICITY PROPHYLAXIS
     Dosage: 5 MG, QW
     Route: 065
  6. IBUPROFEN. [Concomitant]
     Active Substance: IBUPROFEN
     Dosage: UNK
     Route: 065
     Dates: start: 20150916
  7. PREDNISOLONE. [Concomitant]
     Active Substance: PREDNISOLONE
     Indication: JUVENILE IDIOPATHIC ARTHRITIS
     Dosage: 12 MG, QD

REACTIONS (1)
  - Gastroenteritis [Recovered/Resolved]

NARRATIVE: CASE EVENT DATE: 20150916
